FAERS Safety Report 18457518 (Version 3)
Quarter: 2020Q4

REPORT INFORMATION
  Report Type: Spontaneous
  Country: US (occurrence: US)
  Receive Date: 20201030
  Receipt Date: 20201119
  Transmission Date: 20210114
  Serious: No
  Sender: FDA-Public Use
  Company Number: US-TEVA-2020-US-1843338

PATIENT
  Sex: Male

DRUGS (3)
  1. CLONAZEPAM TEVA [Suspect]
     Active Substance: CLONAZEPAM
     Indication: PANIC DISORDER
     Route: 065
     Dates: start: 2012
  2. CLONAZEPAM TEVA [Suspect]
     Active Substance: CLONAZEPAM
     Indication: ANXIETY
     Dosage: 2 MILLIGRAM DAILY;
     Route: 065
     Dates: start: 2008
  3. CLONAZEPAM TEVA [Suspect]
     Active Substance: CLONAZEPAM
     Route: 065

REACTIONS (4)
  - Therapeutic product effect variable [Unknown]
  - Withdrawal syndrome [Unknown]
  - Feeling abnormal [Unknown]
  - Extra dose administered [Unknown]

NARRATIVE: CASE EVENT DATE: 2018
